FAERS Safety Report 5639019-1 (Version None)
Quarter: 2008Q1

REPORT INFORMATION
  Report Type: 
  Country: None (occurrence: None)
  Receive Date: 20080222
  Receipt Date: 20080214
  Transmission Date: 20080703
  Serious: Yes (Hospitalization)
  Sender: FDA-Public Use
  Company Number: 2008-01385

PATIENT
  Age: 70 Year
  Sex: Female

DRUGS (10)
  1. PREDNISONE                (PREDNISONE) TABLET [Suspect]
     Indication: ADRENAL INSUFFICIENCY
     Dosage: 5 MG, DAILY, ORAL
     Route: 048
  2. PHENYTOIN [Suspect]
     Indication: DRUG USE FOR UNKNOWN INDICATION
  3. FLUTICASONE PROPIONATE [Concomitant]
  4. ASPIRIN [Concomitant]
  5. ATORVASTATIN CALCIUM [Concomitant]
  6. ENDO LEVODOPA/CARBIDOPA [Concomitant]
  7. CALCIUM CARBONATE (CALCIUM CARBONATE) [Concomitant]
  8. DOCUSATE SODIUM [Concomitant]
  9. HEPARIN [Concomitant]
  10. CABERGOLINE [Concomitant]

REACTIONS (2)
  - ADRENOCORTICAL INSUFFICIENCY ACUTE [None]
  - DRUG INTERACTION [None]
